FAERS Safety Report 25106449 (Version 1)
Quarter: 2025Q1

REPORT INFORMATION
  Report Type: Spontaneous
  Country: NL (occurrence: NL)
  Receive Date: 20250321
  Receipt Date: 20250321
  Transmission Date: 20250409
  Serious: Yes (Other)
  Sender: TEVA
  Company Number: None

PATIENT
  Age: 59 Year
  Sex: Male
  Weight: 83 kg

DRUGS (2)
  1. EZETIMIBE [Suspect]
     Active Substance: EZETIMIBE
     Indication: Type IIa hyperlipidaemia
     Dosage: 1X PER DAY, BRAND NAME NOT SPECIFIED
     Route: 048
     Dates: start: 20240605, end: 20250120
  2. PRALUENT [Suspect]
     Active Substance: ALIROCUMAB
     Indication: Type IIa hyperlipidaemia
     Dosage: 1X EVERY 2 WEEKS, INJVLST
     Route: 065
     Dates: start: 20240712, end: 20250104

REACTIONS (1)
  - Epilepsy [Not Recovered/Not Resolved]
